FAERS Safety Report 13753900 (Version 1)
Quarter: 2017Q3

REPORT INFORMATION
  Report Type: Spontaneous
  Country: US (occurrence: US)
  Receive Date: 20170714
  Receipt Date: 20170714
  Transmission Date: 20171127
  Serious: Yes (Life-Threatening, Disabling, Other)
  Sender: FDA-Public Use
  Company Number: None

PATIENT
  Age: 27 Year
  Sex: Female
  Weight: 103.5 kg

DRUGS (4)
  1. XANAX [Suspect]
     Active Substance: ALPRAZOLAM
     Indication: PANIC DISORDER
     Dosage: ?          OTHER STRENGTH:MG;QUANTITY:1 TABLET(S);?
     Route: 048
  2. VITACOST GUMMIES [Concomitant]
  3. CBD OIL [Concomitant]
     Active Substance: CANNABIDIOL
  4. MAGNESIUM GLYCINATE [Concomitant]
     Active Substance: MAGNESIUM GLYCINATE

REACTIONS (6)
  - Drug withdrawal syndrome [None]
  - Unevaluable event [None]
  - Postprandial hypoglycaemia [None]
  - Memory impairment [None]
  - Nervous system disorder [None]
  - Multiple drug therapy [None]

NARRATIVE: CASE EVENT DATE: 20160801
